FAERS Safety Report 6302047-7 (Version None)
Quarter: 2009Q3

REPORT INFORMATION
  Report Type: 
  Country: None (occurrence: None)
  Receive Date: 20090807
  Receipt Date: 20090729
  Transmission Date: 20100115
  Serious: Yes (Hospitalization)
  Sender: FDA-Public Use
  Company Number: JP-ABBOTT-09P-087-0587180-00

PATIENT
  Sex: Female
  Weight: 65 kg

DRUGS (4)
  1. LEUPLIN DEPOT [Suspect]
     Indication: PRECOCIOUS PUBERTY
     Route: 058
     Dates: start: 20010101, end: 20070101
  2. PHENOBARBITAL TAB [Concomitant]
     Indication: EPILEPSY
     Route: 048
     Dates: start: 20000101
  3. MYSTAN [Concomitant]
     Indication: EPILEPSY
     Route: 048
     Dates: start: 20000101, end: 20050101
  4. POTASSIUM BROMIDE [Concomitant]
     Indication: EPILEPSY
     Route: 048
     Dates: start: 20050101, end: 20070101

REACTIONS (1)
  - STATUS EPILEPTICUS [None]
